FAERS Safety Report 5957420-3 (Version None)
Quarter: 2008Q4

REPORT INFORMATION
  Report Type: 
  Country: None (occurrence: None)
  Receive Date: 20081118
  Receipt Date: 20080401
  Transmission Date: 20090506
  Serious: Yes (Hospitalization)
  Sender: FDA-Public Use
  Company Number: AU-GENENTECH-271716

PATIENT
  Age: 22 Year
  Sex: Female

DRUGS (1)
  1. PULMOZYME [Suspect]
     Indication: CYSTIC FIBROSIS
     Dosage: UNK
     Dates: start: 19930101

REACTIONS (1)
  - CERVICAL DYSPLASIA [None]
